FAERS Safety Report 24569200 (Version 1)
Quarter: 2024Q4

REPORT INFORMATION
  Report Type: Spontaneous
  Country: US (occurrence: None)
  Receive Date: 20241030
  Receipt Date: 20241030
  Transmission Date: 20250115
  Serious: Yes (Other)
  Sender: Public
  Company Number: None

PATIENT
  Age: 73 Year
  Sex: Female

DRUGS (1)
  1. ORENCIA [Suspect]
     Active Substance: ABATACEPT
     Dates: start: 20240830, end: 20241030

REACTIONS (3)
  - Headache [None]
  - Arthralgia [None]
  - Therapy change [None]

NARRATIVE: CASE EVENT DATE: 20241030
